FAERS Safety Report 21418083 (Version 2)
Quarter: 2022Q4

REPORT INFORMATION
  Report Type: Report from Study
  Country: KR (occurrence: KR)
  Receive Date: 20221006
  Receipt Date: 20221017
  Transmission Date: 20230113
  Serious: No
  Sender: FDA-Public Use
  Company Number: KR-TAKEDA-2022TUS068590

PATIENT
  Age: 62 Year
  Sex: Female

DRUGS (3)
  1. MOBOCERTINIB [Suspect]
     Active Substance: MOBOCERTINIB
     Indication: Non-small cell lung cancer
     Dosage: 160 MILLIGRAM
     Route: 065
     Dates: start: 20220516
  2. MOBOCERTINIB [Suspect]
     Active Substance: MOBOCERTINIB
     Dosage: 120 MILLIGRAM
     Route: 065
     Dates: start: 20220520
  3. MOBOCERTINIB [Suspect]
     Active Substance: MOBOCERTINIB
     Dosage: 80 MILLIGRAM
     Route: 065
     Dates: start: 20220525

REACTIONS (1)
  - Diarrhoea [Recovered/Resolved]

NARRATIVE: CASE EVENT DATE: 20220518
